FAERS Safety Report 10543503 (Version 1)
Quarter: 2014Q4

REPORT INFORMATION
  Report Type: Spontaneous
  Country: US (occurrence: US)
  Receive Date: 20141027
  Receipt Date: 20141027
  Transmission Date: 20150529
  Serious: No
  Sender: FDA-Public Use
  Company Number: US-PFIZER INC-2014290409

PATIENT
  Age: 73 Year
  Sex: Male

DRUGS (1)
  1. INLYTA [Suspect]
     Active Substance: AXITINIB
     Indication: RENAL CELL CARCINOMA
     Dosage: 5 MG, UNK
     Dates: start: 20140929

REACTIONS (6)
  - Ageusia [Unknown]
  - Faecal volume decreased [Unknown]
  - Constipation [Unknown]
  - Alopecia [Unknown]
  - Decreased appetite [Unknown]
  - Hair colour changes [Unknown]
